FAERS Safety Report 22281632 (Version 2)
Quarter: 2023Q2

REPORT INFORMATION
  Report Type: Spontaneous
  Country: GB (occurrence: GB)
  Receive Date: 20230504
  Receipt Date: 20230525
  Transmission Date: 20230721
  Serious: Yes (Other)
  Sender: FDA-Public Use
  Company Number: GB-MYLANLABS-2023M1028989

PATIENT
  Age: 34 Year
  Sex: Male
  Weight: 165 kg

DRUGS (7)
  1. LEVOTHYROXINE [Suspect]
     Active Substance: LEVOTHYROXINE
     Indication: Product used for unknown indication
     Dosage: 50 MICROGRAM DAILY; 50 MICROGRAM, QD
     Route: 065
  2. VENLAFAXINE [Suspect]
     Active Substance: VENLAFAXINE HYDROCHLORIDE
     Indication: Product used for unknown indication
     Dosage: 75 MILLIGRAM DAILY; 75 MILLIGRAM, QD (75MG AT NIGHT)
     Route: 065
  3. CLOZARIL [Suspect]
     Active Substance: CLOZAPINE
     Indication: Product used for unknown indication
     Dosage: 250 MILLIGRAM DAILY; 250 MILLIGRAM, QD (250 MILLIGRAM, 100MG MORNING, 150MG NIGHT )
     Route: 048
     Dates: start: 20110406
  4. KEMADRIN [Suspect]
     Active Substance: PROCYCLIDINE HYDROCHLORIDE
     Indication: Product used for unknown indication
     Dosage: UNK, (2.5MG IN THE MORNING AND 5MG AT NIGHT); ;
     Route: 065
  5. POLYETHYLENE GLYCOLS [Suspect]
     Active Substance: POLYETHYLENE GLYCOLS
     Indication: Product used for unknown indication
     Dosage: UNK, SACHETS;
     Route: 065
  6. SCOPOLAMINE [Suspect]
     Active Substance: SCOPOLAMINE
     Indication: Product used for unknown indication
     Dosage: 2 DOSAGE FORMS DAILY; 2 DOSAGE FORM, QD (2 PUFFS DAILY)
     Route: 045
  7. SCOPOLAMINE [Suspect]
     Active Substance: SCOPOLAMINE
     Dosage: 600 MILLIGRAM DAILY; 300 MILLIGRAM, BID, (TWICE DAILY)
     Route: 065

REACTIONS (1)
  - Thrombocytopenia [Unknown]

NARRATIVE: CASE EVENT DATE: 20230314
